FAERS Safety Report 9680803 (Version 2)
Quarter: 2013Q4

REPORT INFORMATION
  Report Type: Report from Study
  Country: CA (occurrence: CA)
  Receive Date: 20131111
  Receipt Date: 20131119
  Transmission Date: 20140711
  Serious: Yes (Other)
  Sender: FDA-Public Use
  Company Number: PHHY2013CA127510

PATIENT
  Sex: Female

DRUGS (6)
  1. CLOZARIL [Suspect]
     Indication: BIPOLAR DISORDER
     Dosage: 12.5 MG, (HS, AT BEDTIME)
     Route: 048
     Dates: start: 20130829
  2. CLOZARIL [Suspect]
     Dosage: 25 MG, (HS, AT BEDTIME)
     Route: 048
     Dates: start: 20130903
  3. MITOTANE [Suspect]
     Dosage: UNK UKN, UNK
  4. LITHIUM [Concomitant]
     Dosage: 750 MG, HS (AT BEDTIME)
  5. OXAZEPAM [Concomitant]
     Dosage: 30 TO 60 MG HS, AT BEDTIME
  6. SERTRALINE [Concomitant]
     Dosage: 50 MG, BID

REACTIONS (4)
  - Rabbit syndrome [Unknown]
  - Major depression [Unknown]
  - Dyskinesia [Unknown]
  - Vomiting [Unknown]
